FAERS Safety Report 5451622-0 (Version None)
Quarter: 2007Q3

REPORT INFORMATION
  Report Type: 
  Country: None (occurrence: None)
  Receive Date: 20070913
  Receipt Date: 20070904
  Transmission Date: 20080115
  Serious: No
  Sender: FDA-Public Use
  Company Number: US-BOEHRINGER INGELHEIM PHARMACEUTICALS, INC.-2007-BP-20510BP

PATIENT
  Age: 51 Year
  Sex: Female

DRUGS (3)
  1. SPIRIVA [Suspect]
     Indication: CHRONIC OBSTRUCTIVE PULMONARY DISEASE
     Route: 055
     Dates: start: 20070301
  2. ALBUTEROL [Concomitant]
     Route: 055
  3. ATIVAN [Concomitant]

REACTIONS (2)
  - BRONCHOSPASM [None]
  - INCORRECT ROUTE OF DRUG ADMINISTRATION [None]
